FAERS Safety Report 9200625 (Version 1)
Quarter: 2013Q1

REPORT INFORMATION
  Report Type: Spontaneous
  Country: GB (occurrence: GB)
  Receive Date: 20130330
  Receipt Date: 20130330
  Transmission Date: 20140127
  Serious: Yes (Hospitalization, Other)
  Sender: FDA-Public Use
  Company Number: GB-PFIZER INC-2005077864

PATIENT
  Age: 49 Year
  Sex: Male

DRUGS (5)
  1. IBUPROFEN [Suspect]
     Dosage: UNSPECIFIED
     Route: 065
     Dates: start: 20020818
  2. PARACETAMOL [Suspect]
     Dosage: UNSPECIFIED
     Route: 065
     Dates: start: 20020818
  3. PAROXETINE [Suspect]
     Dosage: 20 MG
     Route: 065
     Dates: end: 2002
  4. PREDNISOLONE [Suspect]
     Dosage: UNSPECIFIED
     Route: 065
     Dates: start: 20020818
  5. ALCOHOL [Suspect]
     Dosage: UNSPECIFIED
     Route: 065
     Dates: start: 20020818

REACTIONS (10)
  - Overdose [Unknown]
  - Suicidal ideation [Unknown]
  - Aggression [Unknown]
  - Anxiety [Unknown]
  - Emotional disorder [Unknown]
  - Drug withdrawal syndrome [Unknown]
  - Nightmare [Unknown]
  - Irritability [Unknown]
  - Disturbance in attention [Unknown]
  - Abnormal dreams [Unknown]
